FAERS Safety Report 16196080 (Version 1)
Quarter: 2019Q2

REPORT INFORMATION
  Report Type: Other
  Country: CA (occurrence: CA)
  Receive Date: 20190415
  Receipt Date: 20190415
  Transmission Date: 20190711
  Serious: Yes (Other)
  Sender: FDA-Public Use
  Company Number: CA-ASPEN-GLO2019CA003693

PATIENT
  Age: 11 Month
  Sex: Male

DRUGS (4)
  1. CCNU [Suspect]
     Active Substance: LOMUSTINE
     Indication: ASTROCYTOMA, LOW GRADE
     Route: 065
  2. PROCARBAZINE [Suspect]
     Active Substance: PROCARBAZINE
     Indication: ASTROCYTOMA, LOW GRADE
     Route: 065
  3. VINCRISTINE SULFATE. [Suspect]
     Active Substance: VINCRISTINE SULFATE
     Indication: ASTROCYTOMA, LOW GRADE
     Route: 065
  4. TIOGUANINE [Suspect]
     Active Substance: THIOGUANINE ANHYDROUS
     Indication: ASTROCYTOMA, LOW GRADE
     Route: 065

REACTIONS (3)
  - Off label use [Unknown]
  - Product use in unapproved indication [Unknown]
  - Neuropathy peripheral [Unknown]
